FAERS Safety Report 12325184 (Version 1)
Quarter: 2016Q2

REPORT INFORMATION
  Report Type: Spontaneous
  Country: US (occurrence: US)
  Receive Date: 20160502
  Receipt Date: 20160502
  Transmission Date: 20160815
  Serious: No
  Sender: FDA-Public Use
  Company Number: US-BIOGEN-2016BI00224660

PATIENT

DRUGS (1)
  1. TECFIDERA [Suspect]
     Active Substance: DIMETHYL FUMARATE
     Indication: MULTIPLE SCLEROSIS

REACTIONS (8)
  - Muscle spasms [Unknown]
  - Peripheral coldness [Unknown]
  - Cold sweat [Unknown]
  - Dyspnoea [Unknown]
  - Prescribed underdose [Unknown]
  - Hyperhidrosis [Unknown]
  - Constipation [Unknown]
  - Abdominal pain upper [Unknown]
